FAERS Safety Report 8403379-9 (Version None)
Quarter: 2012Q2

REPORT INFORMATION
  Report Type: 
  Country: None (occurrence: None)
  Receive Date: 20120601
  Receipt Date: 20120522
  Transmission Date: 20120825
  Serious: Yes (Death, Life-Threatening, Congenital Anomaly, Other)
  Sender: FDA-Public Use
  Company Number: DE-TEVA-339202GER

PATIENT
  Age: 0 Year
  Sex: Male

DRUGS (3)
  1. PRESINOL [Concomitant]
     Route: 064
  2. FOLIC ACID [Concomitant]
     Route: 064
  3. METFORMIN HCL [Suspect]
     Route: 064

REACTIONS (7)
  - CEREBRAL HAEMORRHAGE FOETAL [None]
  - HYPOXIC-ISCHAEMIC ENCEPHALOPATHY [None]
  - FEEDING DISORDER NEONATAL [None]
  - CONGENITAL THROMBOCYTE DISORDER [None]
  - HYPOSPADIAS [None]
  - MACROCEPHALY [None]
  - NEONATAL RESPIRATORY DISTRESS SYNDROME [None]
